FAERS Safety Report 4483386-1 (Version None)
Quarter: 2004Q4

REPORT INFORMATION
  Report Type: 
  Country: None (occurrence: None)
  Receive Date: 20041020
  Receipt Date: 20041005
  Transmission Date: 20050328
  Serious: Yes (Hospitalization)
  Sender: FDA-Public Use
  Company Number: 6010904

PATIENT
  Age: 82 Year
  Sex: Female

DRUGS (4)
  1. CONCOR 5(TABLETS) (BISOPROLOL FUMARATE) [Suspect]
     Indication: HYPERTENSION
     Dosage: 5,000 MG (5 MG, 1 IN 1 D) ORAL
     Route: 048
     Dates: start: 20020101
  2. ACTRAPHANE 30 /70 ( INSULIN HUMAN INJECTION) [Suspect]
     Indication: DIABETES MELLITUS
     Dosage: 30/70 (INJECTION)  SUBCUTANEOUS
     Route: 058
     Dates: start: 20030901
  3. BENAPRIL 5 MG (TABLETS) (ENALAPRIL) [Suspect]
     Indication: HYPERTENSION
     Dosage: 10,000 MG (5 MG, 2 IN 1 D) ORAL
     Route: 048
     Dates: start: 20020101
  4. AQUAPHOR 10 (TABLETS) (XIPAMIDE) [Concomitant]

REACTIONS (2)
  - DRUG INTERACTION [None]
  - SHOCK HYPOGLYCAEMIC [None]
